FAERS Safety Report 14144317 (Version 2)
Quarter: 2017Q4

REPORT INFORMATION
  Report Type: Spontaneous
  Country: US (occurrence: US)
  Receive Date: 20171031
  Receipt Date: 20171120
  Transmission Date: 20180321
  Serious: No
  Sender: FDA-Public Use
  Company Number: US-PFIZER INC-2017465594

PATIENT
  Age: 10 Year
  Sex: Male

DRUGS (2)
  1. EUCRISA [Suspect]
     Active Substance: CRISABOROLE
     Indication: ECZEMA
  2. EUCRISA [Suspect]
     Active Substance: CRISABOROLE
     Indication: DERMATITIS ATOPIC
     Dosage: UNK UNK, 2X/DAY
     Route: 061
     Dates: start: 20171017, end: 20171023

REACTIONS (4)
  - Impetigo [Unknown]
  - Application site vesicles [Recovering/Resolving]
  - Erythema [Unknown]
  - Infection [Unknown]

NARRATIVE: CASE EVENT DATE: 20171023
